FAERS Safety Report 5341177-3 (Version None)
Quarter: 2007Q2

REPORT INFORMATION
  Report Type: 
  Country: None (occurrence: None)
  Receive Date: 20070530
  Receipt Date: 20070518
  Transmission Date: 20071010
  Serious: Yes (Death, Hospitalization)
  Sender: FDA-Public Use
  Company Number: CERZ-11716

PATIENT
  Sex: Female
  Weight: 39.9 kg

DRUGS (1)
  1. CEREZYME [Suspect]
     Indication: GAUCHER'S DISEASE
     Dosage: 6000 UNITS Q2WKS IV
     Route: 042
     Dates: start: 19970617

REACTIONS (10)
  - DIABETES MELLITUS INSULIN-DEPENDENT [None]
  - FORCED EXPIRATORY VOLUME DECREASED [None]
  - INFECTION [None]
  - LUNG DISORDER [None]
  - LUNG TRANSPLANT [None]
  - NO THERAPEUTIC RESPONSE [None]
  - PULMONARY HYPERTENSION [None]
  - PYREXIA [None]
  - RESPIRATORY TRACT INFECTION [None]
  - VIRAL INFECTION [None]
